FAERS Safety Report 20675472 (Version 9)
Quarter: 2022Q3

REPORT INFORMATION
  Report Type: Spontaneous
  Country: CA (occurrence: CA)
  Receive Date: 20220405
  Receipt Date: 20220712
  Transmission Date: 20221027
  Serious: Yes (Other)
  Sender: FDA-Public Use
  Company Number: CA-PFIZER INC-202200482849

PATIENT
  Age: 76 Year
  Sex: Female

DRUGS (3)
  1. RUXIENCE [Suspect]
     Active Substance: RITUXIMAB-PVVR
     Indication: Rheumatoid arthritis
     Dosage: 1000 MG, DAY 1 AND 15, EVERY 6 MONTHS
     Route: 042
     Dates: start: 20220325, end: 20220325
  2. RUXIENCE [Suspect]
     Active Substance: RITUXIMAB-PVVR
     Dosage: 1000 MG DAY 1 AND 15, EVERY 6 MONTHS
     Route: 042
     Dates: start: 20220524
  3. RUXIENCE [Suspect]
     Active Substance: RITUXIMAB-PVVR
     Dosage: 1000 MG DAY 1 AND 15, EVERY 6 MONTHS
     Route: 042
     Dates: start: 20220524

REACTIONS (23)
  - Pericarditis [Unknown]
  - Angina pectoris [Recovered/Resolved]
  - Lymphoma [Not Recovered/Not Resolved]
  - Pain [Not Recovered/Not Resolved]
  - Paraesthesia [Recovered/Resolved]
  - Nausea [Recovered/Resolved]
  - Paraesthesia oral [Recovered/Resolved]
  - Dizziness [Unknown]
  - Loss of personal independence in daily activities [Not Recovered/Not Resolved]
  - Nausea [Recovered/Resolved]
  - Vomiting [Recovered/Resolved]
  - Wheezing [Recovered/Resolved]
  - Respiratory rate increased [Recovered/Resolved]
  - Heart rate increased [Recovered/Resolved]
  - Electric shock sensation [Unknown]
  - Vulvovaginal burning sensation [Unknown]
  - Blood urine present [Unknown]
  - Chromaturia [Unknown]
  - Pruritus [Recovered/Resolved]
  - Palpitations [Recovered/Resolved]
  - Discomfort [Unknown]
  - Drug intolerance [Unknown]
  - Oxygen saturation decreased [Unknown]

NARRATIVE: CASE EVENT DATE: 20220325
